FAERS Safety Report 4411156-9 (Version None)
Quarter: 2004Q2

REPORT INFORMATION
  Report Type: 
  Country: None (occurrence: None)
  Receive Date: 20040630
  Receipt Date: 20040430
  Transmission Date: 20050107
  Serious: No
  Sender: FDA-Public Use
  Company Number: 03P-163-0244459-00

PATIENT
  Age: 66 Year
  Sex: Female
  Weight: 77.1115 kg

DRUGS (15)
  1. HUMIRA [Suspect]
     Indication: RHEUMATOID ARTHRITIS
     Dosage: 40 MG, 1 IN 2 WK, SUBCUTANEOUS
     Route: 058
     Dates: start: 20030501, end: 20031101
  2. HUMIRA [Suspect]
     Indication: RHEUMATOID ARTHRITIS
     Dosage: 40 MG, 1 IN 2 WK, SUBCUTANEOUS
     Route: 058
     Dates: start: 20040101
  3. PARACETAMOL [Concomitant]
  4. PREDNISONE TAB [Concomitant]
  5. METHOTREXATE [Concomitant]
  6. FOLIC ACID [Concomitant]
  7. MULTI-VITAMIN [Concomitant]
  8. CA CITRATE MAGNESIUM [Concomitant]
  9. CO2-10 [Concomitant]
  10. GLUCOSE SULFATE [Concomitant]
  11. FISH OIL [Concomitant]
  12. LOSARTAN POTASSIUM [Concomitant]
  13. ATENOLOL [Concomitant]
  14. CALCIUM ASCORBATE [Concomitant]
  15. GARLIC [Concomitant]

REACTIONS (4)
  - CARDIOVASCULAR DISORDER [None]
  - NASOPHARYNGITIS [None]
  - SKIN ULCER [None]
  - VEIN DISORDER [None]
